FAERS Safety Report 13885676 (Version 1)
Quarter: 2017Q3

REPORT INFORMATION
  Report Type: Spontaneous
  Country: CA (occurrence: CA)
  Receive Date: 20170821
  Receipt Date: 20170821
  Transmission Date: 20171127
  Serious: No
  Sender: FDA-Public Use
  Company Number: CA-LUPIN PHARMACEUTICALS INC.-E2B_00006567

PATIENT
  Age: 39 Year
  Sex: Female
  Weight: 59 kg

DRUGS (3)
  1. JENCYCLA [Suspect]
     Active Substance: NORETHINDRONE
     Indication: ENDOMETRIOSIS
     Dosage: .35 MG,QD,
     Route: 048
     Dates: start: 20161101, end: 20161103
  2. VALTREX [Concomitant]
     Active Substance: VALACYCLOVIR HYDROCHLORIDE
     Indication: ORAL HERPES
     Dosage: UNK UNK,UNK,
     Route: 048
  3. JENCYCLA [Suspect]
     Active Substance: NORETHINDRONE
     Indication: ENDOMETRIOSIS
     Dosage: .35 MG,QD,
     Route: 048
     Dates: start: 20161101, end: 20161103

REACTIONS (5)
  - Abdominal pain [Not Recovered/Not Resolved]
  - Metrorrhagia [Not Recovered/Not Resolved]
  - Drug ineffective for unapproved indication [Unknown]
  - Product substitution issue [Unknown]
  - Off label use [Unknown]

NARRATIVE: CASE EVENT DATE: 20161102
